FAERS Safety Report 9961368 (Version 1)
Quarter: 2014Q1

REPORT INFORMATION
  Report Type: Spontaneous
  Country: US (occurrence: US)
  Receive Date: 20140305
  Receipt Date: 20140305
  Transmission Date: 20141002
  Serious: Yes (Hospitalization)
  Sender: FDA-Public Use
  Company Number: PHHY2014US026876

PATIENT
  Age: 62 Year
  Sex: Female
  Weight: 104.3 kg

DRUGS (8)
  1. JAKAFI [Suspect]
     Indication: MYELODYSPLASTIC SYNDROME
     Dosage: 10 MG, QD
     Route: 048
     Dates: start: 201402
  2. EXJADE [Suspect]
     Dosage: UNK UKN, UNK
  3. VITAMIN D2 [Concomitant]
     Dosage: UNK UKN, UNK
  4. OMEPRAZOLE [Concomitant]
     Dosage: UNK UKN, UNK
  5. CITALOPRAM [Concomitant]
     Dosage: UNK UKN, UNK
  6. ETODOLAC [Concomitant]
     Dosage: UNK UKN, UNK
  7. LEVOTHYROXINE [Concomitant]
     Dosage: UNK UKN, UNK
  8. POTASSIUM [Concomitant]
     Dosage: UNK UKN, UNK

REACTIONS (4)
  - Abdominal pain [Unknown]
  - Dyspnoea [Unknown]
  - Cough [Unknown]
  - Musculoskeletal chest pain [Unknown]
